FAERS Safety Report 16868836 (Version 1)
Quarter: 2019Q3

REPORT INFORMATION
  Report Type: Spontaneous
  Country: US (occurrence: US)
  Receive Date: 20190930
  Receipt Date: 20190930
  Transmission Date: 20191005
  Serious: Yes (Other)
  Sender: FDA-Public Use
  Company Number: US-MALLINCKRODT-T201906609

PATIENT
  Sex: Male

DRUGS (1)
  1. OXYCODONE/ACETAMINOPHEN [Suspect]
     Active Substance: ACETAMINOPHEN\OXYCODONE HYDROCHLORIDE
     Indication: NECK PAIN
     Dosage: UNK, TAKING 5 TO 6 PILLS PER DAY
     Route: 065

REACTIONS (4)
  - Limb discomfort [Unknown]
  - Drug dependence [Recovered/Resolved]
  - Abdominal discomfort [Unknown]
  - Limb operation [Unknown]

NARRATIVE: CASE EVENT DATE: 2018
